FAERS Safety Report 6897187-8 (Version None)
Quarter: 2010Q3

REPORT INFORMATION
  Report Type: 
  Country: None (occurrence: None)
  Receive Date: 20100802
  Receipt Date: 20070416
  Transmission Date: 20110219
  Serious: No
  Sender: FDA-Public Use
  Company Number: US-PFIZER INC-2007030403

PATIENT
  Sex: Female

DRUGS (5)
  1. LYRICA [Suspect]
     Indication: POST HERPETIC NEURALGIA
  2. TYLENOL [Concomitant]
  3. MOTRIN [Concomitant]
  4. ALEVE (CAPLET) [Concomitant]
  5. ASPIRINE [Concomitant]

REACTIONS (1)
  - PAIN [None]
